FAERS Safety Report 5822707-1 (Version None)
Quarter: 2008Q3

REPORT INFORMATION
  Report Type: 
  Country: None (occurrence: None)
  Receive Date: 20080725
  Receipt Date: 20080718
  Transmission Date: 20090109
  Serious: Yes (Hospitalization, Disabling, Other)
  Sender: FDA-Public Use
  Company Number: US-ROCHE-451852

PATIENT
  Sex: Male
  Weight: 74.8 kg

DRUGS (1)
  1. ACCUTANE [Suspect]
     Indication: ACNE
     Route: 065
     Dates: start: 19990823, end: 20000202

REACTIONS (49)
  - AMNESIA [None]
  - ANAEMIA HAEMOLYTIC AUTOIMMUNE [None]
  - ANXIETY [None]
  - ARTHRALGIA [None]
  - BACK PAIN [None]
  - BLOOD DISORDER [None]
  - BLOOD GLUCOSE INCREASED [None]
  - CARDIAC DISORDER [None]
  - COAGULOPATHY [None]
  - COLITIS [None]
  - COLITIS ULCERATIVE [None]
  - CONVULSION [None]
  - CROHN'S DISEASE [None]
  - DIARRHOEA INFECTIOUS [None]
  - DIZZINESS [None]
  - DYSPEPSIA [None]
  - ERYTHEMA [None]
  - EXTRAMEDULLARY HAEMOPOIESIS [None]
  - GALLBLADDER POLYP [None]
  - GASTROINTESTINAL INJURY [None]
  - GASTROOESOPHAGEAL REFLUX DISEASE [None]
  - HAEMANGIOMA [None]
  - INFLAMMATORY BOWEL DISEASE [None]
  - INSOMNIA [None]
  - INTESTINAL HAEMORRHAGE [None]
  - IRRITABILITY [None]
  - IRRITABLE BOWEL SYNDROME [None]
  - LUNG INFILTRATION [None]
  - NECK INJURY [None]
  - NO THERAPEUTIC RESPONSE [None]
  - OESOPHAGITIS [None]
  - PERITONEAL ABSCESS [None]
  - PLATELET COUNT INCREASED [None]
  - PNEUMONIA [None]
  - POUCHITIS [None]
  - PROCTITIS [None]
  - PROCTITIS ULCERATIVE [None]
  - PRURITUS [None]
  - RECTAL HAEMORRHAGE [None]
  - SEPSIS [None]
  - SINUS BRADYCARDIA [None]
  - SINUSITIS [None]
  - SOMNOLENCE [None]
  - SPLEEN CONGESTION [None]
  - SPLENOMEGALY [None]
  - STAPHYLOCOCCAL ABSCESS [None]
  - VENTRICULAR EXTRASYSTOLES [None]
  - WARM TYPE HAEMOLYTIC ANAEMIA [None]
  - WEIGHT DECREASED [None]
